FAERS Safety Report 9979867 (Version 1)
Quarter: 2014Q1

REPORT INFORMATION
  Report Type: Spontaneous
  Country: US (occurrence: None)
  Receive Date: 20140305
  Receipt Date: 20140305
  Transmission Date: 20141002
  Serious: No
  Sender: FDA-Public Use
  Company Number: None

PATIENT
  Sex: Female
  Weight: 68.49 kg

DRUGS (2)
  1. PREVACID SOLUTAB [Suspect]
     Indication: GASTROOESOPHAGEAL REFLUX DISEASE
     Dosage: 1 TABLET DAILY
     Route: 048
     Dates: start: 20131004, end: 20131028
  2. OMEPRAZOLE [Suspect]
     Dosage: 1 TABLET DAILY
     Route: 048

REACTIONS (2)
  - Rash [None]
  - Drug intolerance [None]
